FAERS Safety Report 8102058-5 (Version None)
Quarter: 2012Q1

REPORT INFORMATION
  Report Type: 
  Country: None (occurrence: None)
  Receive Date: 20120131
  Receipt Date: 20120130
  Transmission Date: 20120608
  Serious: Yes (Life-Threatening, Hospitalization, Other)
  Sender: FDA-Public Use
  Company Number: AU-B.I. PHARMACEUTICALS,INC./RIDGEFIELD-2011-AU-02561AU

PATIENT
  Sex: Female
  Weight: 64 kg

DRUGS (5)
  1. ALENDRO [Concomitant]
  2. PRADAXA [Suspect]
     Indication: ATRIAL FIBRILLATION
     Dates: start: 20110701, end: 20110831
  3. PERINDOPRIL ERBUMINE [Concomitant]
  4. AMIODARONE HCL [Concomitant]
  5. LIPITOR [Concomitant]

REACTIONS (2)
  - RECTAL HAEMORRHAGE [None]
  - NEOPLASM MALIGNANT [None]
